FAERS Safety Report 7377848-7 (Version None)
Quarter: 2011Q1

REPORT INFORMATION
  Report Type: 
  Country: None (occurrence: None)
  Receive Date: 20110328
  Receipt Date: 20110316
  Transmission Date: 20110831
  Serious: Yes (Other)
  Sender: FDA-Public Use
  Company Number: US-JNJFOC-20110205647

PATIENT
  Sex: Female

DRUGS (4)
  1. ZYPREXA [Concomitant]
     Indication: ILL-DEFINED DISORDER
     Route: 048
  2. KLONOPIN [Concomitant]
     Indication: ILL-DEFINED DISORDER
     Route: 048
  3. INVEGA SUSTENNA [Suspect]
     Route: 030
  4. INVEGA SUSTENNA [Suspect]
     Indication: SCHIZOAFFECTIVE DISORDER
     Route: 030

REACTIONS (8)
  - RESTLESSNESS [None]
  - LIP SWELLING [None]
  - HEART RATE INCREASED [None]
  - PRODUCT QUALITY ISSUE [None]
  - MUSCULOSKELETAL STIFFNESS [None]
  - DROOLING [None]
  - SALIVARY HYPERSECRETION [None]
  - DYSPNOEA [None]
